FAERS Safety Report 12124335 (Version 7)
Quarter: 2017Q2

REPORT INFORMATION
  Report Type: Report from Study
  Country: DE (occurrence: DE)
  Receive Date: 20160229
  Receipt Date: 20170503
  Transmission Date: 20170829
  Serious: Yes (Death, Hospitalization)
  Sender: FDA-Public Use
  Company Number: PHHY2016DE024574

PATIENT
  Sex: Male
  Weight: 134 kg

DRUGS (14)
  1. CANDESARTAN RATIOPHARM [Concomitant]
     Indication: HYPERTENSION
     Dosage: 32 MG, QD
     Route: 048
     Dates: start: 20150505
  2. SPIRONOLACTONE. [Concomitant]
     Active Substance: SPIRONOLACTONE
     Indication: HYPERTENSION
     Dosage: 50 MG, QD (1/2-0-0) DF, QD
     Route: 048
     Dates: start: 20150505
  3. FINASTERID RATIOPHARM [Concomitant]
     Indication: BENIGN PROSTATIC HYPERPLASIA
     Dosage: 5 MG, QD (0-0-1)
     Route: 048
     Dates: start: 20150505
  4. COSENTYX [Suspect]
     Active Substance: SECUKINUMAB
     Dosage: 300 MG, PER APPLICATION
     Route: 065
     Dates: start: 20151208
  5. COSENTYX [Suspect]
     Active Substance: SECUKINUMAB
     Dosage: 300 MG, PER APPLICATION
     Route: 065
     Dates: start: 20151215
  6. COSENTYX [Suspect]
     Active Substance: SECUKINUMAB
     Dosage: 300 MG, PER APPLICATION
     Route: 065
     Dates: start: 20151222
  7. ASS 100 [Concomitant]
     Active Substance: ASPIRIN
     Indication: PLATELET AGGREGATION INHIBITION
     Dosage: 100 OT, QD
     Route: 048
     Dates: start: 20150505
  8. COSENTYX [Suspect]
     Active Substance: SECUKINUMAB
     Dosage: 300 MG, PER APPLICATION
     Route: 065
     Dates: start: 20151201
  9. CLONIDIN RATIOPHARM [Concomitant]
     Active Substance: CLONIDINE HYDROCHLORIDE
     Indication: HYPERTENSION
     Dosage: 250 MG, QD (0-0-1)
     Route: 048
     Dates: start: 20150505
  10. PROCORALAN (IVABRADINE) [Concomitant]
     Active Substance: IVABRADINE
     Indication: ANGINA PECTORIS
     Dosage: 5 MG, QD (0-0-1)
     Route: 048
     Dates: start: 20150505
  11. COSENTYX [Suspect]
     Active Substance: SECUKINUMAB
     Dosage: 300 MG, PER APPLICATION
     Route: 065
     Dates: start: 20160119
  12. TAMSULOSIN RATIOPHARM [Concomitant]
     Indication: BENIGN PROSTATIC HYPERPLASIA
     Dosage: 0.4 MG, QD (0-0-1)
     Route: 048
     Dates: start: 20150505
  13. COSENTYX [Suspect]
     Active Substance: SECUKINUMAB
     Indication: PSORIASIS
     Dosage: 300 MG, PER APPLICATION
     Route: 065
     Dates: start: 20151124
  14. CARMEN [Concomitant]
     Active Substance: LERCANIDIPINE
     Indication: HYPERTENSION
     Dosage: 20 MG, QD (0-0-1/2)
     Route: 048
     Dates: start: 20150505

REACTIONS (4)
  - Glioma [Fatal]
  - Loss of consciousness [Fatal]
  - Intracranial mass [Fatal]
  - Seizure [Fatal]

NARRATIVE: CASE EVENT DATE: 20160212
